FAERS Safety Report 7231116-2 (Version None)
Quarter: 2011Q1

REPORT INFORMATION
  Report Type: 
  Country: None (occurrence: None)
  Receive Date: 20110118
  Receipt Date: 20110113
  Transmission Date: 20110831
  Serious: Yes (Other)
  Sender: FDA-Public Use
  Company Number: TW-ROCHE-753178

PATIENT
  Age: 65 Year
  Sex: Female

DRUGS (2)
  1. XELODA [Suspect]
     Dosage: FREQUENCY: 5 TABS DAILY FOR 5 DAYS FOLLOWED BY 2 DAYS OFF AS A WEEKLY CYCLE.
     Route: 048
     Dates: start: 20101001
  2. XELODA [Suspect]
     Dosage: FREQUENCY: 4 TABS DAILY FOR 5 DAYS AS A WEEKLY CYCLE.
     Route: 048
     Dates: start: 20110101

REACTIONS (2)
  - SUICIDAL IDEATION [None]
  - PALMAR-PLANTAR ERYTHRODYSAESTHESIA SYNDROME [None]
